FAERS Safety Report 6753117-0 (Version None)
Quarter: 2010Q2

REPORT INFORMATION
  Report Type: 
  Country: None (occurrence: None)
  Receive Date: 20100603
  Receipt Date: 20100528
  Transmission Date: 20101027
  Serious: Yes (Other)
  Sender: FDA-Public Use
  Company Number: US-PFIZER INC-2010068197

PATIENT
  Sex: Female
  Weight: 55.782 kg

DRUGS (4)
  1. SOLU-MEDROL [Suspect]
     Indication: DYSPNOEA
     Dosage: 125 MG, UNK
     Dates: start: 20100528
  2. SOLU-MEDROL [Suspect]
     Indication: CHEST DISCOMFORT
  3. SOLU-MEDROL [Suspect]
     Indication: LIP SWELLING
  4. ALBUTEROL [Concomitant]
     Dosage: UNK

REACTIONS (3)
  - HYPOAESTHESIA [None]
  - MOVEMENT DISORDER [None]
  - PAIN IN EXTREMITY [None]
